FAERS Safety Report 9995505 (Version 2)
Quarter: 2014Q1

REPORT INFORMATION
  Report Type: Spontaneous
  Country: US (occurrence: US)
  Receive Date: 20140311
  Receipt Date: 20140311
  Transmission Date: 20141002
  Serious: Yes (Other)
  Sender: FDA-Public Use
  Company Number: US-UCBSA-106103

PATIENT
  Age: 30 Year
  Sex: Female
  Weight: 70.3 kg

DRUGS (3)
  1. CIMZIA [Suspect]
     Indication: CROHN^S DISEASE
     Dosage: FIRST INDUCTION DOSE: 400 MG; NO OF DOSES: 1
     Route: 058
     Dates: start: 20131122, end: 201311
  2. LOPERAMIDE [Concomitant]
     Indication: DIARRHOEA
     Dosage: STRENGTH :2MG (2 TABLETS PRN)
  3. CIPRO [Concomitant]
     Indication: CROHN^S DISEASE

REACTIONS (3)
  - Injection site urticaria [Recovered/Resolved]
  - Chest discomfort [Recovering/Resolving]
  - Dyspnoea [Recovering/Resolving]
